FAERS Safety Report 5522763-4 (Version None)
Quarter: 2007Q4

REPORT INFORMATION
  Report Type: 
  Country: None (occurrence: None)
  Receive Date: 20071120
  Receipt Date: 20071030
  Transmission Date: 20080405
  Serious: No
  Sender: FDA-Public Use
  Company Number: US-BOEHRINGER INGELHEIM PHARMACEUTICALS, INC.-2007-BP-23672BP

PATIENT
  Sex: Male

DRUGS (8)
  1. MIRAPEX [Suspect]
     Indication: RESTLESS LEGS SYNDROME
     Route: 048
     Dates: start: 20020101
  2. METFORMIN HYDROCHLORIDE [Concomitant]
     Indication: DIABETES MELLITUS
  3. ZOCOR [Concomitant]
     Indication: BLOOD CHOLESTEROL INCREASED
  4. TOPROL-XL [Concomitant]
  5. EFFEXOR [Concomitant]
  6. PLAVIX [Concomitant]
  7. ALTACE [Concomitant]
  8. DICLOFONIC [Concomitant]
     Indication: ANTIINFLAMMATORY THERAPY

REACTIONS (1)
  - GAMBLING [None]
